FAERS Safety Report 18442146 (Version 1)
Quarter: 2020Q4

REPORT INFORMATION
  Report Type: Spontaneous
  Country: US (occurrence: US)
  Receive Date: 20201029
  Receipt Date: 20201029
  Transmission Date: 20210114
  Serious: Yes (Death, Hospitalization, Other)
  Sender: FDA-Public Use
  Company Number: US-PURDUE-USA-2020-0172479

PATIENT
  Sex: Male

DRUGS (15)
  1. HYSINGLA ER [Suspect]
     Active Substance: HYDROCODONE BITARTRATE
     Indication: DEEP VEIN THROMBOSIS
     Dosage: UNK
     Route: 048
  2. HYDROCODONE BITARTRATE (SIMILAR TO NDA 206627) [Suspect]
     Active Substance: HYDROCODONE BITARTRATE
     Indication: DEEP VEIN THROMBOSIS
     Dosage: UNK
     Route: 048
  3. OXYFAST [Suspect]
     Active Substance: OXYCODONE
     Indication: DEEP VEIN THROMBOSIS
     Dosage: UNK
     Route: 065
  4. OXYCODONE HYDROCHLORIDE (SIMILAR TO NDA 22-272) [Suspect]
     Active Substance: OXYCODONE HYDROCHLORIDE
     Indication: DEEP VEIN THROMBOSIS
     Dosage: 5 MG, UNK
     Route: 048
  5. RYZOLT [Suspect]
     Active Substance: TRAMADOL HYDROCHLORIDE
     Indication: DEEP VEIN THROMBOSIS
     Dosage: 200 MG, UNK
     Route: 065
  6. HYDROCODONE BITARTRATE AND ACETAMINOPHEN [Suspect]
     Active Substance: ACETAMINOPHEN\HYDROCODONE BITARTRATE
     Indication: DEEP VEIN THROMBOSIS
     Dosage: 2-200 MG
     Route: 048
  7. HYDROMORPHONE TABLETS [Suspect]
     Active Substance: HYDROMORPHONE
     Indication: DEEP VEIN THROMBOSIS
     Dosage: UNK
     Route: 048
  8. MSIR [Suspect]
     Active Substance: MORPHINE SULFATE
     Indication: DEEP VEIN THROMBOSIS
     Dosage: UNK
     Route: 065
  9. PALLADONE [Suspect]
     Active Substance: HYDROMORPHONE HYDROCHLORIDE
     Indication: DEEP VEIN THROMBOSIS
     Dosage: UNK
     Route: 065
  10. HEROIN [Suspect]
     Active Substance: DIAMORPHINE
     Indication: PRODUCT USED FOR UNKNOWN INDICATION
     Dosage: UNK
     Route: 065
  11. OXYCODONE/ ACETAMINOPHEN TABLETS [Suspect]
     Active Substance: ACETAMINOPHEN\OXYCODONE HYDROCHLORIDE
     Indication: DEEP VEIN THROMBOSIS
     Dosage: 5-325 MG
     Route: 048
  12. OXYCODONE HCL TABLETS (RHODES 91-490) [Suspect]
     Active Substance: OXYCODONE HYDROCHLORIDE
     Indication: DEEP VEIN THROMBOSIS
     Dosage: UNK
     Route: 048
  13. TRAMADOL. [Suspect]
     Active Substance: TRAMADOL
     Indication: DEEP VEIN THROMBOSIS
     Dosage: 50 MG, UNK
     Route: 065
  14. MORPHINE SULFATE (SIMILAR TO NDA 19-516) [Suspect]
     Active Substance: MORPHINE SULFATE
     Indication: DEEP VEIN THROMBOSIS
     Dosage: UNK
     Route: 048
  15. DHC PLUS [Suspect]
     Active Substance: ACETAMINOPHEN\CAFFEINE\DIHYDROCODEINE BITARTRATE
     Indication: DEEP VEIN THROMBOSIS
     Dosage: UNK
     Route: 065

REACTIONS (5)
  - Accidental overdose [Fatal]
  - Drug abuse [Unknown]
  - Somnolence [Unknown]
  - Surgery [Unknown]
  - Drug dependence [Unknown]

NARRATIVE: CASE EVENT DATE: 20170628
